FAERS Safety Report 5552401-6 (Version None)
Quarter: 2007Q4

REPORT INFORMATION
  Report Type: 
  Country: None (occurrence: None)
  Receive Date: 20071212
  Receipt Date: 20070615
  Transmission Date: 20080405
  Serious: No
  Sender: FDA-Public Use
  Company Number: US-AMGEN-KDL229894

PATIENT
  Sex: Female

DRUGS (2)
  1. ENBREL [Suspect]
     Route: 058
     Dates: start: 20070531
  2. METHOTREXATE [Concomitant]
     Dates: start: 20060601

REACTIONS (5)
  - FEELING ABNORMAL [None]
  - HEADACHE [None]
  - HYPOAESTHESIA ORAL [None]
  - LIP SWELLING [None]
  - NIGHT SWEATS [None]
